FAERS Safety Report 6437697-0 (Version None)
Quarter: 2009Q4

REPORT INFORMATION
  Report Type: 
  Country: None (occurrence: None)
  Receive Date: 20091106
  Receipt Date: 20090730
  Transmission Date: 20100525
  Serious: Yes (Disabling)
  Sender: FDA-Public Use
  Company Number: WAES 0907USA05662

PATIENT
  Age: 64 Year
  Sex: Male
  Weight: 119.7496 kg

DRUGS (7)
  1. JANUMET [Suspect]
     Indication: TYPE 2 DIABETES MELLITUS
     Dosage: PO
     Route: 048
  2. BENEFIBER [Concomitant]
  3. GEODON [Concomitant]
  4. PEPCID [Concomitant]
  5. PRANDIN [Concomitant]
  6. HYDROCHLOROTHIAZIDE [Concomitant]
  7. LISINOPRIL [Concomitant]

REACTIONS (1)
  - PANCREATITIS [None]
